FAERS Safety Report 25849729 (Version 2)
Quarter: 2025Q4

REPORT INFORMATION
  Report Type: Spontaneous
  Country: CA (occurrence: CA)
  Receive Date: 20250926
  Receipt Date: 20251030
  Transmission Date: 20260117
  Serious: Yes (Death, Life-Threatening, Hospitalization, Other)
  Sender: ACCORD
  Company Number: None

PATIENT
  Age: 65 Year
  Sex: Female

DRUGS (4)
  1. METHOTREXATE SODIUM [Suspect]
     Active Substance: METHOTREXATE SODIUM
     Indication: Psoriasis
     Dosage: EVERY 1 DAY
     Route: 048
  2. LEUCOVORIN [Suspect]
     Active Substance: LEUCOVORIN\LEUCOVORIN CALCIUM
     Indication: Epidermal necrosis
  3. FOLATE SODIUM [Concomitant]
     Active Substance: FOLATE SODIUM
     Indication: Vitamin supplementation
  4. METHOTREXATE SODIUM [Suspect]
     Active Substance: METHOTREXATE SODIUM
     Indication: Psoriasis
     Dosage: 1 EVERY 1 DAY
     Route: 048

REACTIONS (8)
  - Accidental overdose [Fatal]
  - Cardiac dysfunction [Fatal]
  - Sepsis [Fatal]
  - Epidermal necrosis [Fatal]
  - Inappropriate schedule of product administration [Fatal]
  - Cardiovascular disorder [Fatal]
  - Drug ineffective [Fatal]
  - Haemodynamic instability [Fatal]
